FAERS Safety Report 9785400 (Version 1)
Quarter: 2013Q4

REPORT INFORMATION
  Report Type: Spontaneous
  Country: US (occurrence: None)
  Receive Date: 20131223
  Receipt Date: 20131223
  Transmission Date: 20140711
  Serious: Yes (Other)
  Sender: FDA-Public Use
  Company Number: EUS-2013-00739

PATIENT
  Age: 2 Year
  Sex: Male

DRUGS (3)
  1. ASPARAGINASE (UNSPECIFIED) (ASPARAGINASE) [Suspect]
     Indication: ACUTE LYMPHOCYTIC LEUKAEMIA
     Dosage: 500IU/M2 QOD, 8 TIMES), (INTRAVENOUS (NOT OTHERWISE SPECIFIED)
     Route: 042
  2. DEXAMETHASONE (DEXAMETHASONE) [Suspect]
     Indication: ACUTE LYMPHOCYTIC LEUKAEMIA
     Dosage: 10 MG/M2 (10MG/M2 FOR 21 DAYS)
  3. FUROSEMIDE [Concomitant]

REACTIONS (1)
  - Hyperglycaemia [None]
